FAERS Safety Report 9335448 (Version 2)
Quarter: 2013Q2

REPORT INFORMATION
  Report Type: Spontaneous
  Country: US (occurrence: US)
  Receive Date: 20130605
  Receipt Date: 20130605
  Transmission Date: 20140414
  Serious: Yes (Other)
  Sender: FDA-Public Use
  Company Number: US-BAYER-2013-047618

PATIENT
  Sex: Male
  Weight: 68.03 kg

DRUGS (2)
  1. NEO-SYNEPHRINE COLD + SINUS EXTRA STRENGTH [Suspect]
     Indication: SINUS CONGESTION
     Dosage: 1 DOSE, PRN
     Route: 045
     Dates: start: 20130420
  2. ZOMIG [Concomitant]

REACTIONS (1)
  - Epistaxis [Recovered/Resolved]
